FAERS Safety Report 10045925 (Version 1)
Quarter: 2014Q1

REPORT INFORMATION
  Report Type: Spontaneous
  Country: CN (occurrence: CN)
  Receive Date: 20140329
  Receipt Date: 20140329
  Transmission Date: 20141002
  Serious: Yes (Other)
  Sender: FDA-Public Use
  Company Number: CN-009507513-1403CHN013077

PATIENT
  Age: 89 Year
  Sex: Male

DRUGS (1)
  1. PROSCAR [Suspect]
     Indication: BENIGN PROSTATIC HYPERPLASIA
     Dosage: 1 DF, QD
     Route: 048
     Dates: start: 20140224, end: 20140324

REACTIONS (3)
  - Blood pressure systolic increased [Recovering/Resolving]
  - Blood pressure increased [Recovering/Resolving]
  - Blood pressure diastolic increased [Recovering/Resolving]
